FAERS Safety Report 4595094-7 (Version None)
Quarter: 2005Q1

REPORT INFORMATION
  Report Type: 
  Country: None (occurrence: None)
  Receive Date: 20050301
  Receipt Date: 20041130
  Transmission Date: 20050727
  Serious: Yes (Life-Threatening, Hospitalization)
  Sender: FDA-Public Use
  Company Number: DE-MERCK-0412DEU00019

PATIENT
  Age: 64 Year
  Sex: Male
  Weight: 78 kg

DRUGS (20)
  1. FORMOTEROL FUMARATE [Concomitant]
     Route: 065
  2. BISOPROLOL FUMARATE [Concomitant]
     Route: 065
  3. ENALAPRIL MALEATE [Concomitant]
     Route: 065
  4. ATORVASTATIN CALCIUM [Concomitant]
     Route: 065
  5. TAMSULOSIN HYDROCHLORIDE [Concomitant]
     Route: 065
  6. SPIRONOLACTONE [Concomitant]
     Route: 065
  7. BECLOMETHASONE DIPROPIONATE [Concomitant]
     Route: 065
  8. VIOXX [Suspect]
     Indication: SPINAL DISORDER
     Route: 048
     Dates: start: 20010701, end: 20030901
  9. VIOXX [Suspect]
     Route: 048
     Dates: start: 20020601, end: 20021104
  10. VIOXX [Suspect]
     Route: 048
     Dates: start: 20030113, end: 20030825
  11. VIOXX [Suspect]
     Route: 048
     Dates: start: 20030826, end: 20031001
  12. VIOXX [Suspect]
     Route: 048
     Dates: start: 20021111, end: 20021111
  13. VIOXX [Suspect]
     Route: 048
     Dates: start: 20021203, end: 20030112
  14. VIOXX [Suspect]
     Indication: ARTHROPATHY
     Route: 048
     Dates: start: 20010701, end: 20030901
  15. VIOXX [Suspect]
     Route: 048
     Dates: start: 20020601, end: 20021104
  16. VIOXX [Suspect]
     Route: 048
     Dates: start: 20030113, end: 20030825
  17. VIOXX [Suspect]
     Route: 048
     Dates: start: 20030826, end: 20031001
  18. VIOXX [Suspect]
     Route: 048
     Dates: start: 20021111, end: 20021111
  19. VIOXX [Suspect]
     Route: 048
     Dates: start: 20021203, end: 20030112
  20. FENOTEROL HYDROBROMIDE AND IPRATROPIUM BROMIDE [Concomitant]
     Route: 065

REACTIONS (13)
  - ACUTE CORONARY SYNDROME [None]
  - AORTIC STENOSIS [None]
  - ARRHYTHMIA [None]
  - ARTHROPATHY [None]
  - ATRIAL FIBRILLATION [None]
  - CARDIAC DISORDER [None]
  - CARDIAC VALVE DISEASE [None]
  - CORONARY ARTERY DISEASE [None]
  - CORONARY ARTERY STENOSIS [None]
  - DYSPNOEA [None]
  - GASTROINTESTINAL HAEMORRHAGE [None]
  - PYREXIA [None]
  - RESPIRATORY DISORDER [None]
